FAERS Safety Report 6334616-2 (Version None)
Quarter: 2009Q3

REPORT INFORMATION
  Report Type: 
  Country: None (occurrence: None)
  Receive Date: 20090831
  Receipt Date: 20090821
  Transmission Date: 20100115
  Serious: Yes (Death, Other)
  Sender: FDA-Public Use
  Company Number: CA-AMGEN-QUU361194

PATIENT
  Sex: Female
  Weight: 125 kg

DRUGS (15)
  1. ENBREL [Suspect]
     Indication: DRUG USE FOR UNKNOWN INDICATION
     Route: 058
  2. CARDIZEM [Concomitant]
  3. EVISTA [Concomitant]
  4. FOLIC ACID [Concomitant]
  5. GLYBURIDE [Concomitant]
  6. LASIX [Concomitant]
  7. METHOTREXATE [Concomitant]
  8. PARIET [Concomitant]
  9. PRAVACHOL [Concomitant]
  10. PREDNISONE [Concomitant]
  11. TUMS [Concomitant]
  12. TYLENOL (CAPLET) [Concomitant]
  13. VITAMIN B-12 [Concomitant]
     Route: 030
  14. VITAMIN D [Concomitant]
  15. XENICAL [Concomitant]

REACTIONS (3)
  - HAEMATOMA [None]
  - SEPSIS [None]
  - STREPTOCOCCAL INFECTION [None]
